FAERS Safety Report 22101777 (Version 1)
Quarter: 2023Q1

REPORT INFORMATION
  Report Type: Spontaneous
  Country: AU (occurrence: AU)
  Receive Date: 20230316
  Receipt Date: 20230316
  Transmission Date: 20230417
  Serious: Yes (Other)
  Sender: FDA-Public Use
  Company Number: AU-GRUNENTHAL-2023-101568

PATIENT

DRUGS (2)
  1. NUCYNTA ER [Suspect]
     Active Substance: TAPENTADOL HYDROCHLORIDE
     Indication: Pain
     Dosage: 1 DOSAGE FORM, 1/DAY
     Route: 065
  2. NUCYNTA [Suspect]
     Active Substance: TAPENTADOL HYDROCHLORIDE
     Indication: Pain
     Dosage: 1 DOSAGE FORM, EVERY 4 HRS
     Route: 065

REACTIONS (4)
  - Delirium [Unknown]
  - Product prescribing error [Unknown]
  - Overdose [Unknown]
  - Off label use [Unknown]
